FAERS Safety Report 9467540 (Version 1)
Quarter: 2013Q3

REPORT INFORMATION
  Report Type: Report from Study
  Country: US (occurrence: US)
  Receive Date: 20130821
  Receipt Date: 20130821
  Transmission Date: 20140515
  Serious: Yes (Other)
  Sender: FDA-Public Use
  Company Number: US-ROCHE-1261621

PATIENT
  Age: 52 Year
  Sex: Male

DRUGS (9)
  1. XOLAIR [Suspect]
     Indication: ASTHMA
     Route: 065
     Dates: end: 2009
  2. ADVAIR DISKUS [Concomitant]
     Route: 065
  3. ALBUTEROL SULFATE [Concomitant]
     Dosage: FORM STRENGTH: 2.5 MG/3 ML, AS REQUIRED
     Route: 065
  4. COUMADIN [Concomitant]
  5. FUROSEMIDE [Concomitant]
     Route: 048
  6. LEVOTHYROXINE [Concomitant]
     Route: 065
  7. MORPHINE SULFATE [Concomitant]
     Route: 048
  8. OXYCODONE HCL [Concomitant]
     Route: 048
  9. SINGULAIR [Concomitant]
     Route: 065

REACTIONS (1)
  - Pulmonary embolism [Unknown]
